FAERS Safety Report 6837912-5 (Version None)
Quarter: 2010Q3

REPORT INFORMATION
  Report Type: 
  Country: None (occurrence: None)
  Receive Date: 20100713
  Receipt Date: 20070524
  Transmission Date: 20110219
  Serious: No
  Sender: FDA-Public Use
  Company Number: US-PFIZER INC-2007041014

PATIENT
  Sex: Female
  Weight: 63.6 kg

DRUGS (6)
  1. CHANTIX [Suspect]
     Indication: SMOKING CESSATION THERAPY
     Dates: start: 20070510
  2. LORAZEPAM [Concomitant]
  3. LISINOPRIL [Concomitant]
  4. SIMVASTATIN [Concomitant]
  5. ACETYLSALICYLIC ACID [Concomitant]
  6. VITAMINS [Concomitant]

REACTIONS (4)
  - DRY MOUTH [None]
  - DYSGEUSIA [None]
  - NAUSEA [None]
  - THIRST [None]
